FAERS Safety Report 7605083-3 (Version None)
Quarter: 2011Q3

REPORT INFORMATION
  Report Type: 
  Country: None (occurrence: None)
  Receive Date: 20110713
  Receipt Date: 20091122
  Transmission Date: 20111222
  Serious: Yes (Other)
  Sender: FDA-Public Use
  Company Number: US-BAYER-200940296NA

PATIENT
  Age: 84 Year
  Sex: Male
  Weight: 70 kg

DRUGS (22)
  1. TRASYLOL [Suspect]
     Indication: PRODUCT USED FOR UNKNOWN INDICATION
     Dosage: 1 ML, TEST DOSE
     Route: 042
     Dates: start: 20040422, end: 20040422
  2. DOBUTAMINE HCL [Concomitant]
     Dosage: UNK
     Dates: start: 20040422
  3. MECLIZINE [Concomitant]
     Route: 048
  4. ACETYLSALICYLIC ACID SRT [Concomitant]
     Route: 048
  5. PLASMA-LYTE A [Concomitant]
     Dosage: UNK
     Dates: start: 20040422
  6. CORDARONE [Concomitant]
  7. TRASYLOL [Suspect]
     Dosage: 200 ML, UNK
     Route: 042
     Dates: start: 20040422, end: 20040422
  8. FLONASE [Concomitant]
     Route: 048
  9. AMIDATE [Concomitant]
     Dosage: UNK
     Dates: start: 20040422
  10. MAGNESIUM SULFATE [Concomitant]
     Dosage: UNK
     Dates: start: 20040422
  11. TRASYLOL [Suspect]
     Dosage: 30 ML, Q1HR
     Route: 042
     Dates: start: 20040422, end: 20040422
  12. TOPROL-XL [Concomitant]
     Dosage: 50 MG, UNK
     Route: 048
  13. PRINIVIL [Concomitant]
     Dosage: 10 MG, UNK
     Route: 048
  14. FENTANYL-100 [Concomitant]
     Dosage: UNK
     Dates: start: 20040422
  15. LANOXIN [Concomitant]
     Dosage: .125 MG, QD
     Route: 048
  16. SYNTHROID [Concomitant]
     Route: 048
  17. ROCURONIUM BROMIDE [Concomitant]
     Dosage: UNK
     Dates: start: 20040422
  18. POTASSIUM CHLORIDE [Concomitant]
     Dosage: UNK
     Dates: start: 20040422
  19. HEPARIN [Concomitant]
     Dosage: UNK
     Dates: start: 20040422
  20. ANCEF [Concomitant]
     Dosage: UNK
     Dates: start: 20040422
  21. EPINEPHRINE [Concomitant]
     Dosage: UNK
     Dates: start: 20040422
  22. PROTAMINE SULFATE [Concomitant]
     Dosage: UNK
     Dates: start: 20040422

REACTIONS (11)
  - PAIN [None]
  - RENAL FAILURE [None]
  - FEAR [None]
  - EMOTIONAL DISTRESS [None]
  - ANXIETY [None]
  - INJURY [None]
  - STRESS [None]
  - UNEVALUABLE EVENT [None]
  - RENAL IMPAIRMENT [None]
  - RENAL INJURY [None]
  - ANHEDONIA [None]
